FAERS Safety Report 25735247 (Version 2)
Quarter: 2025Q3

REPORT INFORMATION
  Report Type: Report from Study
  Country: CA (occurrence: CA)
  Receive Date: 20250828
  Receipt Date: 20250915
  Transmission Date: 20251020
  Serious: Yes (Other)
  Sender: EMD SERONO INC
  Company Number: CA-Merck Healthcare KGaA-2025042882

PATIENT
  Age: 58 Year
  Sex: Female

DRUGS (2)
  1. MAVENCLAD [Suspect]
     Active Substance: CLADRIBINE
     Indication: Multiple sclerosis
  2. MAVENCLAD [Suspect]
     Active Substance: CLADRIBINE

REACTIONS (3)
  - Furuncle [Recovered/Resolved]
  - Pneumonia [Recovered/Resolved]
  - Lymphocyte count decreased [Recovered/Resolved]

NARRATIVE: CASE EVENT DATE: 20250301
